FAERS Safety Report 12233873 (Version 1)
Quarter: 2016Q2

REPORT INFORMATION
  Report Type: Spontaneous
  Country: ES (occurrence: ES)
  Receive Date: 20160404
  Receipt Date: 20160404
  Transmission Date: 20160815
  Serious: Yes (Hospitalization)
  Sender: FDA-Public Use
  Company Number: ES-JNJFOC-20160327779

PATIENT
  Age: 66 Year
  Sex: Female

DRUGS (7)
  1. ETOMIDATE. [Concomitant]
     Active Substance: ETOMIDATE
     Indication: CORONARY ANGIOPLASTY
     Route: 042
     Dates: start: 20150114, end: 20150114
  2. ACETYLSALICYLIC ACID [Suspect]
     Active Substance: ASPIRIN
     Indication: CORONARY ANGIOPLASTY
     Route: 042
     Dates: start: 20150114, end: 20150114
  3. VISIPAQUE [Concomitant]
     Active Substance: IODIXANOL
     Dosage: 1 VIAL OF 100 ML
     Route: 042
     Dates: start: 20150114, end: 20150114
  4. SODIUM HEPARIN [Suspect]
     Active Substance: HEPARIN SODIUM
     Indication: CORONARY ANGIOPLASTY
     Route: 042
     Dates: start: 20150114, end: 20150114
  5. DOPAMINE [Concomitant]
     Active Substance: DOPAMINE\DOPAMINE HYDROCHLORIDE
     Route: 042
     Dates: start: 20150114
  6. REOPRO [Suspect]
     Active Substance: ABCIXIMAB
     Indication: CORONARY ARTERY THROMBOSIS
     Dosage: 2 MG/ML, 1 VIAL OF 5 ML
     Route: 042
     Dates: start: 20150114, end: 20150116
  7. MIDAZOLAM [Concomitant]
     Active Substance: MIDAZOLAM\MIDAZOLAM HYDROCHLORIDE
     Route: 042
     Dates: start: 20150114, end: 20150114

REACTIONS (2)
  - Thrombocytopenia [Recovering/Resolving]
  - Peripheral artery thrombosis [Recovering/Resolving]

NARRATIVE: CASE EVENT DATE: 20150115
